FAERS Safety Report 9454339 (Version 2)
Quarter: 2013Q3

REPORT INFORMATION
  Report Type: Report from Study
  Country: BR (occurrence: BR)
  Receive Date: 20130812
  Receipt Date: 20130911
  Transmission Date: 20140515
  Serious: Yes (Hospitalization, Other)
  Sender: FDA-Public Use
  Company Number: PHHY2013BR084284

PATIENT
  Sex: Male
  Weight: 115 kg

DRUGS (10)
  1. SANDOSTATIN LAR [Suspect]
     Indication: PITUITARY TUMOUR
     Dosage: 30 MG, EVERY 28 DAYS
     Route: 030
     Dates: start: 2005
  2. SANDOSTATIN LAR [Suspect]
     Dosage: 30 MG, UNK
     Route: 030
  3. DEPOSTERON [Concomitant]
     Indication: HORMONE REPLACEMENT THERAPY
     Dosage: 1 DF, MONTHLY
     Route: 030
     Dates: start: 2005
  4. AAS [Concomitant]
     Dosage: UNK UKN, UNK
     Dates: start: 2005
  5. INSULIN ACTRAPID [Concomitant]
     Dosage: UNK UKN, UNK
  6. PARACETAMOL [Concomitant]
     Indication: HEADACHE
     Dosage: 4 DF, DAILY
     Route: 048
     Dates: start: 2004
  7. PARACETAMOL [Concomitant]
     Indication: BACK PAIN
  8. PARACETAMOL [Concomitant]
     Indication: ARTHRALGIA
  9. PREDNISONE [Concomitant]
     Indication: ADRENAL INSUFFICIENCY
     Dosage: 0.5 DF, EVERY OTHER DAY
     Route: 048
     Dates: start: 2005
  10. PREDNISONE [Concomitant]
     Dosage: 1 DF, EVERY OTHER DAY
     Route: 048

REACTIONS (11)
  - Epistaxis [Recovered/Resolved]
  - Blindness [Recovering/Resolving]
  - Adrenal insufficiency [Not Recovered/Not Resolved]
  - Diabetes mellitus [Not Recovered/Not Resolved]
  - Neoplasm progression [Not Recovered/Not Resolved]
  - Hypothyroidism [Not Recovered/Not Resolved]
  - Blood cholesterol increased [Not Recovered/Not Resolved]
  - Pain [Not Recovered/Not Resolved]
  - Blood pressure increased [Not Recovered/Not Resolved]
  - Sexual dysfunction [Not Recovered/Not Resolved]
  - Abdominal pain upper [Not Recovered/Not Resolved]
